FAERS Safety Report 16610225 (Version 1)
Quarter: 2019Q3

REPORT INFORMATION
  Report Type: Spontaneous
  Country: US (occurrence: US)
  Receive Date: 20190722
  Receipt Date: 20190722
  Transmission Date: 20191004
  Serious: No
  Sender: FDA-Public Use
  Company Number: US-TEVA-2019-US-1079805

PATIENT
  Sex: Male
  Weight: 71.21 kg

DRUGS (3)
  1. VITAMIN D [Concomitant]
     Active Substance: VITAMIN D NOS
     Indication: VITAMIN D DEFICIENCY
  2. NORTRIPTYLINE TEVA [Suspect]
     Active Substance: NORTRIPTYLINE
     Dosage: 10MG 2 CAPSULES AT BEDTIME
     Route: 065
  3. GABAPENTIN. [Suspect]
     Active Substance: GABAPENTIN
     Indication: DIABETIC NEUROPATHY
     Dosage: 600MG 3 TIMES A DAY BY MOUTH
     Route: 048

REACTIONS (1)
  - Drug ineffective [Unknown]
